FAERS Safety Report 7095546-4 (Version None)
Quarter: 2010Q4

REPORT INFORMATION
  Report Type: 
  Country: None (occurrence: None)
  Receive Date: 20101111
  Receipt Date: 20101108
  Transmission Date: 20110411
  Serious: Yes (Death, Hospitalization)
  Sender: FDA-Public Use
  Company Number: NL-B.I. PHARMACEUTICALS,INC./RIDGEFIELD-2010-DE-05458DE

PATIENT
  Sex: Male
  Weight: 76 kg

DRUGS (3)
  1. DABIGATRAN [Suspect]
     Indication: DEEP VEIN THROMBOSIS
     Dosage: 300 MG
     Route: 048
     Dates: start: 20100921, end: 20100929
  2. PRETREATMENT [Suspect]
  3. ACETYLSAL CARD [Concomitant]
     Indication: TRANSIENT ISCHAEMIC ATTACK
     Dosage: 80 MG
     Route: 048
     Dates: start: 19900101

REACTIONS (3)
  - DEEP VEIN THROMBOSIS [None]
  - PULMONARY EMBOLISM [None]
  - RESPIRATORY FAILURE [None]
